FAERS Safety Report 14296806 (Version 3)
Quarter: 2017Q4

REPORT INFORMATION
  Report Type: Spontaneous
  Country: IL (occurrence: IL)
  Receive Date: 20171218
  Receipt Date: 20171231
  Transmission Date: 20180321
  Serious: Yes (Hospitalization, Other)
  Sender: FDA-Public Use
  Company Number: IL-TEVA-2017-IL-833009

PATIENT
  Sex: Male

DRUGS (21)
  1. NIVOLUMAB [Concomitant]
     Active Substance: NIVOLUMAB
     Indication: IMMUNE SYSTEM DISORDER
  2. CANNABIS [Concomitant]
     Active Substance: CANNABIS SATIVA SUBSP. INDICA TOP
  3. NEURONTIN [Concomitant]
     Active Substance: GABAPENTIN
     Dosage: 200 MILLIGRAM DAILY;
     Dates: start: 20171109
  4. FENTA [Concomitant]
     Dosage: PATCH, ON 31-OCT-2017 FREQUENCY INCREASED FROM EVERY 72 HOURS TO EVERY 48 HOURS
  5. TRAMADEX FLASH [Concomitant]
     Dosage: UP TO 4 TIMES A DAY
  6. ENSURE [Concomitant]
     Active Substance: AMINO ACIDS\DEXTROSE\ELECTROLYTES NOS\SOYBEAN OIL\VITAMINS
  7. OPTALGIN [Concomitant]
     Active Substance: METAMIZOLE
     Dosage: 4 GRAM DAILY;
  8. LAXADIN [Concomitant]
     Active Substance: BISACODYL
     Dosage: 10 MILLIGRAM DAILY;
  9. SPRAY PEC FENT [Concomitant]
     Dates: end: 20171031
  10. MOTILIUM [Concomitant]
     Active Substance: DOMPERIDONE
     Dosage: 30 MILLIGRAM DAILY;
  11. CARDILOC [Concomitant]
     Active Substance: BISOPROLOL FUMARATE
     Dosage: 5 MILLIGRAM DAILY;
  12. NEURONTIN [Concomitant]
     Active Substance: GABAPENTIN
     Dosage: 1200 MILLIGRAM DAILY;
     Dates: start: 20171109
  13. XARELTO [Concomitant]
     Active Substance: RIVAROXABAN
     Dosage: 15 MILLIGRAM DAILY;
  14. PROFEX [Concomitant]
     Dosage: 150 MILLIGRAM DAILY;
  15. OXYCOD FORTE [Concomitant]
     Dosage: SOL, UP TO 3 TIMES A DAY
  16. FENTORA [Suspect]
     Active Substance: FENTANYL CITRATE
     Indication: BREAKTHROUGH PAIN
     Dosage: 600 MICROGRAM DAILY;
     Route: 065
     Dates: start: 20171027
  17. LORIVAN [Concomitant]
  18. ONDANSETRON [Concomitant]
     Active Substance: ONDANSETRON
     Dosage: 8 MILLIGRAM DAILY;
  19. NORMALAX [Concomitant]
     Dosage: 34 GRAM DAILY;
  20. CLONEX [Concomitant]
     Dosage: .125 MILLIGRAM DAILY;
  21. M.I.R [Concomitant]
     Dosage: 60-90 MG
     Dates: end: 20171108

REACTIONS (5)
  - Gallbladder disorder [Unknown]
  - Hepatic function abnormal [Recovering/Resolving]
  - Ascites [Unknown]
  - Hepatitis [Unknown]
  - Jaundice [Unknown]

NARRATIVE: CASE EVENT DATE: 2017
